FAERS Safety Report 22606059 (Version 1)
Quarter: 2023Q2

REPORT INFORMATION
  Report Type: Spontaneous
  Country: MA (occurrence: MA)
  Receive Date: 20230615
  Receipt Date: 20230615
  Transmission Date: 20230721
  Serious: Yes (Hospitalization)
  Sender: FDA-Public Use
  Company Number: MA-SENORESPHARMA-2023SP00002

PATIENT
  Age: 64 Year
  Sex: Male

DRUGS (1)
  1. DICLOFENAC [Suspect]
     Active Substance: DICLOFENAC
     Indication: Post-traumatic pain
     Route: 013

REACTIONS (2)
  - Peripheral ischaemia [Recovering/Resolving]
  - Incorrect route of product administration [Unknown]
